FAERS Safety Report 10687303 (Version 2)
Quarter: 2015Q1

REPORT INFORMATION
  Report Type: Spontaneous
  Country: US (occurrence: US)
  Receive Date: 20150102
  Receipt Date: 20150119
  Transmission Date: 20150720
  Serious: Yes (Death, Hospitalization)
  Sender: FDA-Public Use
  Company Number: US-BEH-2014047596

PATIENT
  Age: 65 Year
  Sex: Male
  Weight: 67 kg

DRUGS (25)
  1. DUONEB [Concomitant]
     Active Substance: ALBUTEROL SULFATE\IPRATROPIUM BROMIDE
  2. PREDNISONE. [Concomitant]
     Active Substance: PREDNISONE
  3. RA TUSSIN SYRUP [Concomitant]
  4. PROAIR HFA [Concomitant]
     Active Substance: ALBUTEROL SULFATE
  5. LMX [Concomitant]
     Active Substance: LIDOCAINE
  6. TYLENOL ARTHRITIS ER [Concomitant]
  7. BENICAR [Concomitant]
     Active Substance: OLMESARTAN MEDOXOMIL
  8. PROTONIX [Concomitant]
     Active Substance: PANTOPRAZOLE SODIUM
  9. SYMBICORT [Concomitant]
     Active Substance: BUDESONIDE\FORMOTEROL FUMARATE DIHYDRATE
  10. SPIRIVA [Concomitant]
     Active Substance: TIOTROPIUM BROMIDE MONOHYDRATE
  11. DIPHENHYDRAMINE [Concomitant]
     Active Substance: DIPHENHYDRAMINE
  12. SIMVASTATIN. [Concomitant]
     Active Substance: SIMVASTATIN
  13. THEOPHYLLINE ER [Concomitant]
     Active Substance: THEOPHYLLINE ANHYDROUS
  14. FENOFIBRATE. [Concomitant]
     Active Substance: FENOFIBRATE
  15. LOSARTAN POTASSIUM. [Concomitant]
     Active Substance: LOSARTAN POTASSIUM
  16. ZITHROMAX [Concomitant]
     Active Substance: AZITHROMYCIN DIHYDRATE
  17. NEXIUM DR [Concomitant]
  18. EPIPEN [Concomitant]
     Active Substance: EPINEPHRINE
  19. HYDROCODONE CHLORPHENIRAMINE TUSSIONEX [Concomitant]
  20. ZYRTEC [Concomitant]
     Active Substance: CETIRIZINE HYDROCHLORIDE
  21. SODIUM CHLORIDE. [Concomitant]
     Active Substance: SODIUM CHLORIDE
  22. TRIAMTERENE HCTZ [Concomitant]
     Active Substance: HYDROCHLOROTHIAZIDE\TRIAMTERENE
  23. ZEMAIRA [Suspect]
     Active Substance: .ALPHA.1-PROTEINASE INHIBITOR HUMAN
     Indication: ALPHA-1 ANTI-TRYPSIN DEFICIENCY
     Route: 042
  24. MILK OF MAGNESIA [Concomitant]
     Active Substance: MAGNESIUM HYDROXIDE
  25. MEDROL DOSE PAK [Concomitant]

REACTIONS (1)
  - Lung neoplasm malignant [Fatal]

NARRATIVE: CASE EVENT DATE: 20141222
